FAERS Safety Report 23128647 (Version 1)
Quarter: 2023Q4

REPORT INFORMATION
  Report Type: Spontaneous
  Country: FR (occurrence: None)
  Receive Date: 20231031
  Receipt Date: 20231031
  Transmission Date: 20240109
  Serious: Yes (Hospitalization)
  Sender: FDA-Public Use
  Company Number: FR-Orion Corporation ORION PHARMA-TREX2023-0266

PATIENT
  Age: 88 Year
  Sex: Female
  Weight: 50 kg

DRUGS (3)
  1. METHOTREXATE [Suspect]
     Active Substance: METHOTREXATE
     Indication: Rheumatoid arthritis
     Dosage: STRENGTH:10MG; 1.5 TABLET/WEEK
  2. FOLIC ACID [Concomitant]
     Active Substance: FOLIC ACID
     Indication: Rheumatoid arthritis
     Dosage: STRENGTH: 5MG; 2CAPSULE/WEEK
  3. ALENDRONATE SODIUM ANHYDROUS [Concomitant]
     Active Substance: ALENDRONATE SODIUM ANHYDROUS
     Indication: Osteoporosis

REACTIONS (1)
  - Cerebrovascular accident [Recovering/Resolving]

NARRATIVE: CASE EVENT DATE: 20230806
